FAERS Safety Report 8543639-4 (Version None)
Quarter: 2012Q3

REPORT INFORMATION
  Report Type: 
  Country: None (occurrence: None)
  Receive Date: 20120727
  Receipt Date: 20120719
  Transmission Date: 20120928
  Serious: Yes (Other)
  Sender: FDA-Public Use
  Company Number: CA-NOVOPROD-356440

PATIENT
  Age: 41 Year
  Sex: Female
  Weight: 141 kg

DRUGS (21)
  1. EPIPEN [Concomitant]
  2. LIPITOR [Concomitant]
  3. BETAMETHASONE DIPROPIONATE [Concomitant]
  4. GLUCOPHAGE [Concomitant]
  5. NAPROSYN [Concomitant]
  6. VENTOLIN HFA [Concomitant]
  7. VITAMIN D [Concomitant]
  8. MAGNESIUM OXIDE [Concomitant]
  9. CALCIUM CARBONATE [Concomitant]
  10. FERROUS SULFATE TAB [Concomitant]
  11. HUMALOG [Concomitant]
  12. HUMULIN                            /00646003/ [Concomitant]
  13. VICTOZA [Suspect]
     Indication: PRODUCT USED FOR UNKNOWN INDICATION
     Dosage: 1.8MG/SC
  14. DOMPERIDONE [Concomitant]
  15. FLOVENT [Concomitant]
  16. GLYBURIDE [Concomitant]
  17. GABAPENTIN [Concomitant]
  18. RABEPRAZOLE SODIUM [Concomitant]
  19. LANTUS [Concomitant]
  20. CENTRUM                            /00554501/ [Concomitant]
  21. TYLENOL W/ CODEINE [Concomitant]

REACTIONS (1)
  - HYPOMAGNESAEMIA [None]
